FAERS Safety Report 19906416 (Version 3)
Quarter: 2021Q4

REPORT INFORMATION
  Report Type: Spontaneous
  Country: US (occurrence: US)
  Receive Date: 20211001
  Receipt Date: 20211014
  Transmission Date: 20220303
  Serious: No
  Sender: FDA-Public Use
  Company Number: US-ELI_LILLY_AND_COMPANY-US202110000307

PATIENT
  Age: 79 Year
  Sex: Male

DRUGS (3)
  1. TRULICITY [Suspect]
     Active Substance: DULAGLUTIDE
     Indication: Product used for unknown indication
     Dosage: 0.75 MG, UNKNOWN
     Route: 065
  2. JARDIANCE [Concomitant]
     Active Substance: EMPAGLIFLOZIN
     Indication: Product used for unknown indication
  3. ROSUVASTATIN [Concomitant]
     Active Substance: ROSUVASTATIN
     Indication: Product used for unknown indication

REACTIONS (11)
  - Blood pressure decreased [Recovered/Resolved]
  - Peripheral coldness [Recovered/Resolved]
  - Chills [Recovered/Resolved]
  - Ocular hyperaemia [Recovered/Resolved]
  - Somnolence [Unknown]
  - Respiratory rate increased [Recovered/Resolved]
  - Eyelid disorder [Recovered/Resolved]
  - Pallor [Recovered/Resolved]
  - Lethargy [Recovered/Resolved]
  - Heart rate increased [Recovered/Resolved]
  - Decreased appetite [Recovering/Resolving]

NARRATIVE: CASE EVENT DATE: 20210723
